FAERS Safety Report 4337853-1 (Version None)
Quarter: 2004Q2

REPORT INFORMATION
  Report Type: 
  Country: None (occurrence: None)
  Receive Date: 20040412
  Receipt Date: 20040205
  Transmission Date: 20050107
  Serious: No
  Sender: FDA-Public Use
  Company Number: A03200400382

PATIENT
  Age: 50 Year

DRUGS (2)
  1. ARIXTRA [Suspect]
     Indication: HIP ARTHROPLASTY
     Dosage: INTRAVENOUS NOS
     Route: 042
     Dates: start: 20040101
  2. ARIXTRA [Suspect]
     Indication: THROMBOSIS PROPHYLAXIS
     Dosage: INTRAVENOUS NOS
     Route: 042
     Dates: start: 20040101

REACTIONS (1)
  - BLOOD GLUCOSE DECREASED [None]
